FAERS Safety Report 8904109 (Version 2)
Quarter: 2013Q1

REPORT INFORMATION
  Report Type: Report from Study
  Country: JP (occurrence: JP)
  Receive Date: 20121112
  Receipt Date: 20130122
  Transmission Date: 20140127
  Serious: Yes (Death)
  Sender: FDA-Public Use
  Company Number: JP-PFIZER INC-2012278053

PATIENT
  Age: 68 Year
  Sex: Male
  Weight: 63 kg

DRUGS (19)
  1. PREGABALIN [Suspect]
     Indication: NEUROPATHY PERIPHERAL
     Dosage: 50 MG, 1X/DAY
     Route: 048
     Dates: start: 20110506, end: 20110516
  2. PREGABALIN [Suspect]
     Dosage: 75 MG, 1X/DAY
     Route: 048
     Dates: start: 20110517, end: 20110523
  3. PREGABALIN [Suspect]
     Dosage: 100 MG, 1X/DAY
     Route: 048
     Dates: start: 20110524, end: 20110525
  4. PREGABALIN [Suspect]
     Dosage: 75 MG, 1X/DAY
     Route: 048
     Dates: start: 20110526, end: 20110626
  5. PREGABALIN [Suspect]
     Dosage: 50 MG, 1X/DAY
     Route: 048
     Dates: start: 20110627, end: 20110628
  6. LOXOPROFEN [Concomitant]
     Indication: PAIN
     Dosage: 60 MG, 3X/DAY
     Route: 048
     Dates: end: 20110706
  7. OLMETEC [Concomitant]
     Indication: HYPERTENSION
     Dosage: 20 MG, 1X/DAY
     Route: 048
     Dates: end: 20110706
  8. PARIET [Concomitant]
     Indication: PROPHYLAXIS
     Dosage: 30 MG, 1X/DAY
     Route: 048
     Dates: end: 20110706
  9. LIPITOR [Concomitant]
     Indication: HYPERLIPIDAEMIA
     Dosage: 10 MG, 1X/DAY
     Route: 048
     Dates: end: 20110706
  10. SENNOSIDE [Concomitant]
     Indication: CONSTIPATION PROPHYLAXIS
     Dosage: 24 MG, 1X/DAY
     Route: 048
     Dates: end: 20110706
  11. MAGMITT [Concomitant]
     Indication: CONSTIPATION PROPHYLAXIS
     Dosage: 660 MG, 3X/DAY
     Route: 048
     Dates: end: 20110706
  12. PANVITAN [Concomitant]
     Indication: PROPHYLAXIS
     Dosage: 1 G, 1X/DAY
     Route: 048
     Dates: end: 20110706
  13. MORPHINE HYDROCHLORIDE [Concomitant]
     Indication: PAIN
     Dosage: 134MG/DAY
     Route: 058
     Dates: end: 20110531
  14. BETANAMIN [Concomitant]
     Dosage: 10 MG, 1X/DAY
     Route: 048
     Dates: start: 20110608, end: 20110706
  15. OXYCONTIN [Concomitant]
     Indication: PAIN
     Dosage: 100 MG, 2X/DAY
     Route: 048
     Dates: start: 20110601, end: 20110614
  16. OXYCONTIN [Concomitant]
     Dosage: 80 MG, 2X/DAY
     Route: 048
     Dates: start: 20110615, end: 20110626
  17. OXYCONTIN [Concomitant]
     Dosage: 40 MG, 2X/DAY
     Route: 048
     Dates: start: 20110621, end: 20110630
  18. OXYCONTIN [Concomitant]
     Dosage: 20 MG, 2X/DAY
     Route: 048
     Dates: start: 20110701, end: 20110706
  19. FENTANYL [Concomitant]
     Indication: PAIN
     Dosage: 0.24 MG, UNK
     Route: 058
     Dates: start: 20110704, end: 20110715

REACTIONS (2)
  - Lung neoplasm malignant [Fatal]
  - Disease progression [Fatal]
